FAERS Safety Report 7213024-6 (Version None)
Quarter: 2011Q1

REPORT INFORMATION
  Report Type: 
  Country: None (occurrence: None)
  Receive Date: 20110106
  Receipt Date: 20101228
  Transmission Date: 20110831
  Serious: Yes (Disabling)
  Sender: FDA-Public Use
  Company Number: B0675491A

PATIENT
  Age: 46 Year
  Sex: Male
  Weight: 79 kg

DRUGS (5)
  1. SEROXAT [Suspect]
     Indication: ANXIETY DISORDER
     Dosage: 20MG PER DAY
     Route: 065
     Dates: start: 20030101
  2. TRAZODONE HCL [Concomitant]
     Dosage: 150MG PER DAY
  3. SERETIDE [Concomitant]
     Dosage: 250MCG PER DAY
  4. SIMVASTATIN [Concomitant]
     Dosage: 20MG PER DAY
  5. LORAZEPAM [Concomitant]
     Dosage: 1MG PER DAY

REACTIONS (3)
  - VISUAL ACUITY REDUCED [None]
  - CHORIORETINOPATHY [None]
  - METAMORPHOPSIA [None]
